FAERS Safety Report 6616559-X (Version None)
Quarter: 2010Q1

REPORT INFORMATION
  Report Type: 
  Country: None (occurrence: None)
  Receive Date: 20100305
  Receipt Date: 20100222
  Transmission Date: 20100710
  Serious: Yes (Other)
  Sender: FDA-Public Use
  Company Number: JP-PFIZER INC-2010023684

PATIENT

DRUGS (1)
  1. IDAMYCIN [Suspect]
     Dosage: INJ
     Route: 042

REACTIONS (1)
  - VASCULITIS [None]
